FAERS Safety Report 8610828-X (Version None)
Quarter: 2012Q3

REPORT INFORMATION
  Report Type: 
  Country: None (occurrence: None)
  Receive Date: 20120423
  Receipt Date: 20090910
  Transmission Date: 20120928
  Serious: Yes (Hospitalization)
  Sender: FDA-Public Use
  Company Number: PHEH2009US09213

PATIENT
  Age: 72 Year
  Sex: Female
  Weight: 49.5 kg

DRUGS (10)
  1. CLONAZEPAM [Concomitant]
  2. POTASSIUM CHLORIDE [Concomitant]
  3. FEMARA [Suspect]
     Indication: BREAST CANCER
     Dosage: 2.5 MG, QD, ORAL
     Route: 048
     Dates: start: 20040430
  4. LIPITOR [Concomitant]
  5. DYAZIDE [Concomitant]
  6. CALTRATE 600 + VITAMIN D (CALCIUM CARBONATE, ERGOCALCIFEROL) [Concomitant]
  7. FOSAMAX [Concomitant]
  8. TOPAMAX [Concomitant]
  9. SINGULAIR [Concomitant]
  10. PROPRANOLOL [Concomitant]

REACTIONS (3)
  - JUGULAR VEIN THROMBOSIS [None]
  - LOCAL SWELLING [None]
  - TENDERNESS [None]
